FAERS Safety Report 5654134-4 (Version None)
Quarter: 2008Q1

REPORT INFORMATION
  Report Type: 
  Country: None (occurrence: None)
  Receive Date: 20080306
  Receipt Date: 20080303
  Transmission Date: 20080703
  Serious: Yes (Other)
  Sender: FDA-Public Use
  Company Number: IN-BOEHRINGER INGELHEIM GMBH, GERMANY-2008-BP-03150RO

PATIENT
  Age: 45 Year
  Sex: Male

DRUGS (2)
  1. ZOLPIDEM [Suspect]
     Indication: INSOMNIA
  2. CLONAZEPAM [Concomitant]
     Indication: DETOXIFICATION

REACTIONS (3)
  - ANXIETY [None]
  - DRUG DEPENDENCE [None]
  - DRUG INEFFECTIVE [None]
